FAERS Safety Report 6701617-1 (Version None)
Quarter: 2010Q2

REPORT INFORMATION
  Report Type: 
  Country: None (occurrence: None)
  Receive Date: 20100429
  Receipt Date: 20100419
  Transmission Date: 20101027
  Serious: Yes (Hospitalization)
  Sender: FDA-Public Use
  Company Number: US-MYLANLABS-2010S1005508

PATIENT
  Age: 19 Year
  Sex: Male
  Weight: 63.5 kg

DRUGS (3)
  1. AMNESTEEM [Suspect]
     Indication: ACNE
     Dates: start: 20091124, end: 20100318
  2. VENTOLIN [Concomitant]
     Dosage: INHALER AND NEBULIZER
     Route: 055
  3. SYMBICORT [Concomitant]
     Route: 055

REACTIONS (3)
  - ASTHMA [None]
  - DIZZINESS [None]
  - SYNCOPE [None]
